FAERS Safety Report 7319065-2 (Version None)
Quarter: 2011Q1

REPORT INFORMATION
  Report Type: 
  Country: None (occurrence: None)
  Receive Date: 20110223
  Receipt Date: 20110223
  Transmission Date: 20110831
  Serious: Yes (Hospitalization)
  Sender: FDA-Public Use
  Company Number: None

PATIENT
  Age: 52 Year
  Sex: Female
  Weight: 63.05 kg

DRUGS (2)
  1. OXYCONTIN [Suspect]
     Dosage: 30 MG. 3 X DAY PO
     Route: 048
     Dates: start: 20101004, end: 20101005
  2. OXYCONTIN [Suspect]
     Dosage: 30 MG. 3 X DAY PO
     Route: 048
     Dates: start: 20101008, end: 20101015

REACTIONS (5)
  - GASTRIC DISORDER [None]
  - DRUG WITHDRAWAL SYNDROME [None]
  - NAUSEA [None]
  - QUALITY OF LIFE DECREASED [None]
  - PRODUCT SUBSTITUTION ISSUE [None]
